FAERS Safety Report 8922795 (Version 3)
Quarter: 2014Q1

REPORT INFORMATION
  Report Type: Spontaneous
  Country: US (occurrence: US)
  Receive Date: 20121125
  Receipt Date: 20140221
  Transmission Date: 20141002
  Serious: Yes (Hospitalization)
  Sender: FDA-Public Use
  Company Number: US-BAYER-2012-120749

PATIENT
  Age: 32 Year
  Sex: Female
  Weight: 63.49 kg

DRUGS (2)
  1. MIRENA [Suspect]
     Indication: CONTRACEPTION
     Dosage: 20 MCG/24HR, CONT
     Route: 015
     Dates: start: 20100720, end: 20121108
  2. CITALOPRAM [Concomitant]
     Indication: PREMENSTRUAL DYSPHORIC DISORDER
     Dosage: UNK
     Dates: start: 2011, end: 2013

REACTIONS (8)
  - Uterine perforation [None]
  - Injury [None]
  - Pain [None]
  - Medical device complication [None]
  - Emotional distress [None]
  - Anxiety [None]
  - Fear [None]
  - Device issue [None]
